FAERS Safety Report 10544854 (Version 12)
Quarter: 2020Q1

REPORT INFORMATION
  Report Type: Spontaneous
  Country: JP (occurrence: JP)
  Receive Date: 20141027
  Receipt Date: 20200304
  Transmission Date: 20200409
  Serious: Yes (Other)
  Sender: FDA-Public Use
  Company Number: JP-ABBVIE-14P-087-1294396-00

PATIENT
  Age: 51 Year
  Sex: Male
  Weight: 92 kg

DRUGS (15)
  1. PYRIDOXAL PHOSPHATE HYDRATE [Concomitant]
     Indication: NERVOUS SYSTEM DISORDER PROPHYLAXIS
     Route: 048
     Dates: start: 20120601, end: 20130124
  2. CYCLOSPORINE. [Suspect]
     Active Substance: CYCLOSPORINE
     Indication: PSORIASIS
     Route: 065
     Dates: start: 1999, end: 20120719
  3. REBAMIPIDE [Concomitant]
     Active Substance: REBAMIPIDE
     Indication: GASTROINTESTINAL DISORDER PROPHYLAXIS
     Route: 048
     Dates: start: 20170428, end: 20170515
  4. FAMOTIDINE. [Concomitant]
     Active Substance: FAMOTIDINE
     Indication: GASTROINTESTINAL DISORDER PROPHYLAXIS
     Route: 048
     Dates: start: 20120601, end: 20120824
  5. MESALAZINE [Concomitant]
     Active Substance: MESALAMINE
     Indication: COLITIS ULCERATIVE
     Route: 048
     Dates: start: 20130104
  6. DEXAMETHASONE AND GLYTEER [Concomitant]
     Indication: PSORIASIS
     Route: 061
     Dates: start: 20160422
  7. HUMIRA [Suspect]
     Active Substance: ADALIMUMAB
     Route: 058
     Dates: start: 20120706, end: 20190824
  8. FELBINAC [Concomitant]
     Active Substance: FELBINAC
     Indication: PSORIATIC ARTHROPATHY
     Route: 061
     Dates: start: 20170623, end: 20180223
  9. HUMIRA [Suspect]
     Active Substance: ADALIMUMAB
     Indication: PSORIASIS
     Route: 058
     Dates: start: 20120622, end: 20120622
  10. CICLOSPORIN [Concomitant]
     Active Substance: CYCLOSPORINE
     Indication: PSORIASIS
     Dosage: 150200 MG/DAY
     Route: 048
     Dates: start: 1997, end: 20120719
  11. ISONIAZID. [Concomitant]
     Active Substance: ISONIAZID
     Indication: LATENT TUBERCULOSIS
     Route: 048
     Dates: start: 20120601, end: 20130124
  12. CALCIPOTRIENE AND BETAMETHASONE DIPROPIONATE [Concomitant]
     Active Substance: BETAMETHASONE DIPROPIONATE\CALCIPOTRIENE
     Indication: PSORIASIS
     Route: 061
     Dates: start: 20150501
  13. LOXOPROFEN SODIUM HYDRATE [Concomitant]
     Active Substance: LOXOPROFEN SODIUM DIHYDRATE
     Indication: PSORIATIC ARTHROPATHY
     Route: 048
     Dates: start: 20170428, end: 20170515
  14. LULICONAZOLE. [Concomitant]
     Active Substance: LULICONAZOLE
     Indication: TINEA PEDIS
     Route: 061
     Dates: start: 20180629, end: 20181221
  15. ASPIRIN. [Concomitant]
     Active Substance: ASPIRIN
     Indication: THROMBOSIS PROPHYLAXIS
     Route: 048
     Dates: start: 20190314

REACTIONS (5)
  - Psoriatic arthropathy [Unknown]
  - Lupus-like syndrome [Unknown]
  - Therapeutic product effect incomplete [Unknown]
  - Colitis ulcerative [Recovering/Resolving]
  - Spondylitis [Unknown]

NARRATIVE: CASE EVENT DATE: 20130118
